FAERS Safety Report 17801015 (Version 1)
Quarter: 2020Q2

REPORT INFORMATION
  Report Type: Spontaneous
  Country: US (occurrence: US)
  Receive Date: 20200519
  Receipt Date: 20200519
  Transmission Date: 20200714
  Serious: Yes (Death, Other)
  Sender: FDA-Public Use
  Company Number: US-009507513-2005USA005978

PATIENT
  Age: 72 Year
  Sex: Male
  Weight: 58.97 kg

DRUGS (2)
  1. KEYTRUDA [Suspect]
     Active Substance: PEMBROLIZUMAB
     Dosage: UNKNOWN DOSE, IT WAS AN INFUSION
     Dates: start: 202002, end: 20200316
  2. INLYTA [Suspect]
     Active Substance: AXITINIB
     Indication: RENAL CELL CARCINOMA
     Dosage: 5 MILLIGRAM TABLET, 1 TABLET BY MOUTH TWICE A DAY
     Route: 048
     Dates: start: 201911, end: 20200316

REACTIONS (3)
  - Death [Fatal]
  - Hypertension [Unknown]
  - Drug ineffective [Unknown]

NARRATIVE: CASE EVENT DATE: 20200507
